FAERS Safety Report 23700408 (Version 1)
Quarter: 2024Q2

REPORT INFORMATION
  Report Type: Spontaneous
  Country: US (occurrence: US)
  Receive Date: 20240403
  Receipt Date: 20240403
  Transmission Date: 20240716
  Serious: Yes (Other)
  Sender: FDA-Public Use
  Company Number: US-BAUSCHBL-2024BNL003854

PATIENT
  Age: 56 Year
  Sex: Female
  Weight: 58.05 kg

DRUGS (5)
  1. MURO 128 [Suspect]
     Active Substance: SODIUM CHLORIDE
     Indication: Corneal abrasion
     Route: 047
     Dates: start: 202302
  2. MURO 128 [Suspect]
     Active Substance: SODIUM CHLORIDE
     Indication: Product use in unapproved indication
  3. LEVOTHYROXINE [Concomitant]
     Active Substance: LEVOTHYROXINE\LEVOTHYROXINE SODIUM
     Indication: Product used for unknown indication
     Route: 065
  4. ZOLOFT [Concomitant]
     Active Substance: SERTRALINE HYDROCHLORIDE
     Indication: Product used for unknown indication
     Route: 065
  5. TRAZODONE [Concomitant]
     Active Substance: TRAZODONE HYDROCHLORIDE
     Indication: Product used for unknown indication
     Route: 065

REACTIONS (6)
  - Blindness [Unknown]
  - Ocular discomfort [Unknown]
  - Inability to afford medication [Unknown]
  - Product colour issue [Unknown]
  - Product quality issue [Unknown]
  - Product use in unapproved indication [Unknown]
